FAERS Safety Report 13578190 (Version 1)
Quarter: 2017Q2

REPORT INFORMATION
  Report Type: Spontaneous
  Country: US (occurrence: US)
  Receive Date: 20170524
  Receipt Date: 20170524
  Transmission Date: 20170830
  Serious: Yes (Hospitalization)
  Sender: FDA-Public Use
  Company Number: US-DRREDDYS-USA/USA/16/0080936

PATIENT
  Age: 42 Year
  Sex: Male

DRUGS (1)
  1. QUETIAPINE. [Suspect]
     Active Substance: QUETIAPINE
     Indication: SCHIZOAFFECTIVE DISORDER
     Route: 065
     Dates: start: 201302

REACTIONS (5)
  - Increased insulin requirement [Recovered/Resolved]
  - Blood glucose increased [Recovered/Resolved]
  - Pancreatitis relapsing [Recovered/Resolved]
  - Hypertriglyceridaemia [Recovered/Resolved]
  - Condition aggravated [Recovered/Resolved]
